FAERS Safety Report 13299097 (Version 2)
Quarter: 2017Q1

REPORT INFORMATION
  Report Type: Spontaneous
  Country: CO (occurrence: CO)
  Receive Date: 20170306
  Receipt Date: 20170308
  Transmission Date: 20170428
  Serious: Yes (Hospitalization)
  Sender: FDA-Public Use
  Company Number: CO-BIOGEN-2015BI122361

PATIENT
  Age: 29 Year
  Sex: Female

DRUGS (3)
  1. TYSABRI [Concomitant]
     Active Substance: NATALIZUMAB
     Indication: PRODUCT USED FOR UNKNOWN INDICATION
     Route: 065
     Dates: start: 2014, end: 201508
  2. ALENTUZUMAB [Concomitant]
     Indication: PRODUCT USED FOR UNKNOWN INDICATION
     Route: 065
  3. FAMPYRA [Suspect]
     Active Substance: DALFAMPRIDINE
     Indication: GAIT DISTURBANCE
     Route: 048
     Dates: start: 20140926, end: 201702

REACTIONS (5)
  - Fall [Recovered/Resolved]
  - Multiple sclerosis [Unknown]
  - Influenza like illness [Not Recovered/Not Resolved]
  - Pain [Unknown]
  - Tracheobronchitis [Not Recovered/Not Resolved]

NARRATIVE: CASE EVENT DATE: 20150813
